FAERS Safety Report 17012755 (Version 1)
Quarter: 2019Q4

REPORT INFORMATION
  Report Type: Spontaneous
  Country: US (occurrence: US)
  Receive Date: 20191001
  Receipt Date: 20191001
  Transmission Date: 20200122
  Serious: No
  Sender: FDA-Public Use
  Company Number: None

PATIENT
  Sex: Male

DRUGS (1)
  1. TESTOPEL [Suspect]
     Active Substance: TESTOSTERONE
     Indication: TESTICULAR FAILURE
     Dosage: ?          OTHER DOSE:IMPLANT 14 PELLETS;OTHER FREQUENCY:EVERY 3 MONTHS;?
     Route: 058
     Dates: start: 20180419

REACTIONS (1)
  - Shoulder arthroplasty [None]
